FAERS Safety Report 9808532 (Version 2)
Quarter: 2014Q1

REPORT INFORMATION
  Report Type: Spontaneous
  Country: US (occurrence: US)
  Receive Date: 20140110
  Receipt Date: 20140120
  Transmission Date: 20141002
  Serious: Yes (Hospitalization, Other)
  Sender: FDA-Public Use
  Company Number: US-009507513-1401USA000552

PATIENT
  Age: 68 Year
  Sex: Female

DRUGS (6)
  1. PRINIVIL [Suspect]
     Indication: BLOOD PRESSURE MANAGEMENT
     Dosage: UNK
     Route: 048
  2. HYDRALAZINE [Concomitant]
  3. METFORMIN [Concomitant]
  4. ALPRAZOLAM [Concomitant]
  5. ALLOPURINOL [Concomitant]
  6. ZOCOR [Concomitant]
     Route: 048

REACTIONS (2)
  - Blood product transfusion [Recovering/Resolving]
  - Angioedema [Recovering/Resolving]
